FAERS Safety Report 14364596 (Version 1)
Quarter: 2018Q1

REPORT INFORMATION
  Report Type: Spontaneous
  Country: US (occurrence: US)
  Receive Date: 20180108
  Receipt Date: 20180108
  Transmission Date: 20180509
  Serious: No
  Sender: FDA-Public Use
  Company Number: US-LUNDBECK-DKLU2036251

PATIENT
  Age: 55 Year
  Sex: Female

DRUGS (2)
  1. NORTHERA [Suspect]
     Active Substance: DROXIDOPA
     Route: 048
     Dates: start: 20170823
  2. NORTHERA [Suspect]
     Active Substance: DROXIDOPA
     Indication: PRODUCT USED FOR UNKNOWN INDICATION
     Dosage: SCHEDULE A AND TITRATING
     Route: 048
     Dates: start: 20170822, end: 20170823

REACTIONS (1)
  - Incorrect dose administered [Unknown]

NARRATIVE: CASE EVENT DATE: 20170823
